FAERS Safety Report 6012724-3 (Version None)
Quarter: 2008Q4

REPORT INFORMATION
  Report Type: 
  Country: None (occurrence: None)
  Receive Date: 20081217
  Receipt Date: 20081126
  Transmission Date: 20090506
  Serious: Yes (Other)
  Sender: FDA-Public Use
  Company Number: 081202-0000966

PATIENT
  Age: 6 Month
  Sex: Male

DRUGS (2)
  1. COSMEGEN [Suspect]
     Indication: RENAL CANCER
  2. VINCRISTINE [Suspect]
     Indication: RENAL CANCER

REACTIONS (1)
  - ILEUS PARALYTIC [None]
